FAERS Safety Report 13583223 (Version 1)
Quarter: 2017Q2

REPORT INFORMATION
  Report Type: Spontaneous
  Country: US (occurrence: US)
  Receive Date: 20170525
  Receipt Date: 20170525
  Transmission Date: 20170830
  Serious: Yes (Other)
  Sender: FDA-Public Use
  Company Number: US-AMGEN-USASP2017077431

PATIENT
  Age: 54 Year
  Sex: Male

DRUGS (2)
  1. ENBREL [Suspect]
     Active Substance: ETANERCEPT
     Indication: RHEUMATOID ARTHRITIS
     Dosage: 25 MG, 3 TIMES/WK
     Route: 058
     Dates: end: 20170123
  2. ENBREL [Suspect]
     Active Substance: ETANERCEPT
     Dosage: 25 MG, 3 TIMES/WK
     Route: 058
     Dates: start: 2017, end: 20170516

REACTIONS (2)
  - Rheumatoid arthritis [Unknown]
  - Knee operation [Unknown]

NARRATIVE: CASE EVENT DATE: 20170202
